FAERS Safety Report 6122723-9 (Version None)
Quarter: 2009Q1

REPORT INFORMATION
  Report Type: 
  Country: None (occurrence: None)
  Receive Date: 20090318
  Receipt Date: 20090305
  Transmission Date: 20090719
  Serious: Yes (Death)
  Sender: FDA-Public Use
  Company Number: JP-ABBOTT-09P-087-0562731-00

PATIENT
  Age: 64 Year
  Sex: Male

DRUGS (4)
  1. LEUPLIN SR FOR INJECTION 11.25 MG [Suspect]
     Indication: PROSTATE CANCER STAGE IV
     Route: 058
     Dates: start: 20060329, end: 20070427
  2. DIETHYLSTILBESTROL [Concomitant]
     Indication: PROSTATE CANCER STAGE IV
     Route: 042
     Dates: start: 20060329, end: 20070622
  3. ZOMETA [Concomitant]
     Indication: PROSTATE CANCER STAGE IV
     Route: 050
     Dates: start: 20060929, end: 20070622
  4. RINDERON [Concomitant]
     Indication: PROSTATE CANCER STAGE IV
     Route: 048
     Dates: start: 20070511, end: 20070722

REACTIONS (2)
  - OEDEMA PERIPHERAL [None]
  - PROSTATE CANCER [None]
